FAERS Safety Report 5511020-8 (Version None)
Quarter: 2007Q4

REPORT INFORMATION
  Report Type: 
  Country: None (occurrence: None)
  Receive Date: 20071109
  Receipt Date: 20071030
  Transmission Date: 20080405
  Serious: Yes (Other)
  Sender: FDA-Public Use
  Company Number: GB-TYCO HEALTHCARE/MALLINCKRODT-T200701351

PATIENT

DRUGS (4)
  1. IMIPRAMINE PAMOATE [Suspect]
     Indication: ANXIETY
     Dosage: UNK, UNK
     Dates: end: 20050701
  2. IMIPRAMINE PAMOATE [Suspect]
     Dosage: 25 MG, QD
     Dates: start: 20060509, end: 20060707
  3. CITALOPRAM [Suspect]
     Dosage: 20 MG, QD
     Dates: start: 20050701
  4. LEVOTHYROXINE SODIUM [Concomitant]
     Dosage: UNK, UNK
     Dates: start: 20050901

REACTIONS (2)
  - ANGLE CLOSURE GLAUCOMA [None]
  - INTRAOCULAR PRESSURE TEST ABNORMAL [None]
